FAERS Safety Report 7218273-9 (Version None)
Quarter: 2011Q1

REPORT INFORMATION
  Report Type: 
  Country: None (occurrence: None)
  Receive Date: 20110110
  Receipt Date: 20101228
  Transmission Date: 20110831
  Serious: No
  Sender: FDA-Public Use
  Company Number: US-B.I. PHARMACEUTICALS,INC./RIDGEFIELD-2011-BP-00092BP

PATIENT
  Sex: Female

DRUGS (8)
  1. GLIPIZIDE [Concomitant]
     Indication: TYPE 2 DIABETES MELLITUS
  2. PRADAXA [Suspect]
     Indication: PROPHYLAXIS
  3. TAZTIA [Suspect]
     Indication: HYPERTENSION
  4. SPIRIVA [Concomitant]
     Indication: CHRONIC OBSTRUCTIVE PULMONARY DISEASE
  5. FUROSEMIDE [Concomitant]
     Indication: HYPERTENSION
  6. FUROSEMIDE [Concomitant]
     Indication: DIURETIC THERAPY
  7. PRADAXA [Suspect]
     Indication: ATRIAL FIBRILLATION
     Dosage: 300 MG
     Route: 048
     Dates: start: 20101224
  8. CARVEDILOL [Concomitant]
     Indication: HYPERTENSION

REACTIONS (3)
  - SENSATION OF FOREIGN BODY [None]
  - BREAST PAIN [None]
  - VISUAL IMPAIRMENT [None]
